FAERS Safety Report 21170890 (Version 1)
Quarter: 2022Q3

REPORT INFORMATION
  Report Type: Spontaneous
  Country: BR (occurrence: BR)
  Receive Date: 20220804
  Receipt Date: 20220804
  Transmission Date: 20221027
  Serious: Yes (Other)
  Sender: FDA-Public Use
  Company Number: BR-CHEPLA-2022006662

PATIENT
  Age: 54 Year
  Sex: Female
  Weight: 53 kg

DRUGS (11)
  1. CLONAZEPAM [Suspect]
     Active Substance: CLONAZEPAM
     Indication: Insomnia
  2. ACTEMRA [Concomitant]
     Active Substance: TOCILIZUMAB
     Indication: Rheumatoid arthritis
     Dates: start: 20161209, end: 20220722
  3. METHOTREXATE [Concomitant]
     Active Substance: METHOTREXATE
     Indication: Osteoporosis
  4. FOLIC ACID [Concomitant]
     Active Substance: FOLIC ACID
     Indication: Osteoporosis
  5. PREDNISONE [Concomitant]
     Active Substance: PREDNISONE
     Indication: Arthritis infective
  6. Vitamina d 7000 [Concomitant]
     Indication: Immunisation
  7. CALCIUM BICARBONATE [Concomitant]
     Active Substance: CALCIUM BICARBONATE
     Indication: Osteoporosis
  8. SIMVASTATIN [Concomitant]
     Active Substance: SIMVASTATIN
     Indication: Blood cholesterol increased
  9. LEVOTHYROXINE [Concomitant]
     Active Substance: LEVOTHYROXINE
     Indication: Thyroid disorder
  10. TRAZODONE HYDROCHLORIDE [Concomitant]
     Active Substance: TRAZODONE HYDROCHLORIDE
     Indication: Insomnia
  11. ZOLPIDEM [Concomitant]
     Active Substance: ZOLPIDEM TARTRATE
     Indication: Insomnia

REACTIONS (9)
  - Rheumatoid arthritis [Unknown]
  - Cushing^s syndrome [Unknown]
  - Hyperthyroidism [Unknown]
  - Arthritis infective [Unknown]
  - Osteoporosis [Unknown]
  - Fibromyalgia [Unknown]
  - COVID-19 [Recovering/Resolving]
  - Blood cholesterol increased [Unknown]
  - Product use in unapproved indication [Unknown]

NARRATIVE: CASE EVENT DATE: 20220724
